FAERS Safety Report 6134302-8 (Version None)
Quarter: 2009Q1

REPORT INFORMATION
  Report Type: 
  Country: None (occurrence: None)
  Receive Date: 20090325
  Receipt Date: 20090211
  Transmission Date: 20090719
  Serious: Yes (Other)
  Sender: FDA-Public Use
  Company Number: 2009AP000525

PATIENT
  Age: 27 Year
  Sex: Female

DRUGS (4)
  1. PREDNISOLONE [Suspect]
     Indication: CROHN'S DISEASE
     Dosage: PO
     Route: 048
  2. AZATHIOPRINE [Suspect]
     Indication: CROHN'S DISEASE
  3. INFLIXIMAB (INFLIXIMAB) [Suspect]
     Indication: CROHN'S DISEASE
  4. MESALAMINE [Concomitant]

REACTIONS (1)
  - MELANOCYTIC NAEVUS [None]
